FAERS Safety Report 8550988-2 (Version None)
Quarter: 2012Q3

REPORT INFORMATION
  Report Type: 
  Country: None (occurrence: None)
  Receive Date: 20120730
  Receipt Date: 20120727
  Transmission Date: 20120928
  Serious: Yes (Hospitalization, Other)
  Sender: FDA-Public Use
  Company Number: US-TEVA-344084USA

PATIENT
  Sex: Male

DRUGS (8)
  1. ALBUTEROL SULATE [Concomitant]
  2. SIMVASTATIN [Concomitant]
  3. IPRATROPIUM BROMIDE [Concomitant]
  4. CLONAZEPAM [Suspect]
     Dosage: WAS ON FOR 8 YEARS
     Dates: start: 20120601, end: 20120101
  5. PRIMIDONE [Concomitant]
     Indication: TREMOR
  6. BUSPIRONE HCL [Suspect]
     Dosage: STARTED 4 WEEKS AGO
     Dates: start: 20120101
  7. ALBUTEROL SULATE [Concomitant]
  8. LISINOPRIL [Concomitant]
     Indication: BLOOD PRESSURE

REACTIONS (4)
  - FALL [None]
  - COORDINATION ABNORMAL [None]
  - DRUG INEFFECTIVE [None]
  - DRUG WITHDRAWAL SYNDROME [None]
